FAERS Safety Report 23762494 (Version 1)
Quarter: 2024Q2

REPORT INFORMATION
  Report Type: Report from Study
  Country: CN (occurrence: CN)
  Receive Date: 20240419
  Receipt Date: 20240419
  Transmission Date: 20240716
  Serious: Yes (Death, Hospitalization, Other)
  Sender: FDA-Public Use
  Company Number: CN-BAXTER-2023BAX039425

PATIENT
  Age: 68 Year
  Sex: Male
  Weight: 45 kg

DRUGS (12)
  1. CYCLOPHOSPHAMIDE [Suspect]
     Active Substance: CYCLOPHOSPHAMIDE
     Indication: Lymphodepletion
     Dosage: 250 MG/M, 2/DAY, D1-D2
     Route: 041
     Dates: start: 20231129, end: 20231130
  2. FLUDARABINE [Suspect]
     Active Substance: FLUDARABINE PHOSPHATE
     Indication: Lymphodepletion
     Dosage: 25 MG/M, 2/DAY, D1-D2
     Route: 041
     Dates: start: 20231129, end: 20231130
  3. PACLITAXEL [Suspect]
     Active Substance: PACLITAXEL
     Indication: Lymphodepletion
     Dosage: 100 MG/DAY, D2
     Route: 041
     Dates: start: 20231130, end: 20231130
  4. IRINOTECAN [Suspect]
     Active Substance: IRINOTECAN
     Indication: Adenocarcinoma gastric
     Dosage: 223.5 MG, SINGLE DOSE
     Route: 041
     Dates: start: 20231028, end: 20231028
  5. FLUOROURACIL [Suspect]
     Active Substance: FLUOROURACIL
     Indication: Adenocarcinoma gastric
     Dosage: 3576 MG, SINGLE DOSE ONCE
     Route: 041
     Dates: start: 20231028, end: 20231030
  6. RECOMBINANT HUMAN THROMBOPOIETIN [Concomitant]
     Active Substance: RECOMBINANT HUMAN THROMBOPOIETIN
     Indication: Platelet count decreased
     Dosage: UNK
     Route: 065
     Dates: start: 20231203
  7. RECOMBINANT HUMAN THROMBOPOIETIN [Concomitant]
     Active Substance: RECOMBINANT HUMAN THROMBOPOIETIN
     Dosage: UNK
     Route: 065
     Dates: start: 20231205
  8. RECOMBINANT HUMAN THROMBOPOIETIN [Concomitant]
     Active Substance: RECOMBINANT HUMAN THROMBOPOIETIN
     Dosage: UNK
     Route: 065
     Dates: start: 20231206
  9. RECOMBINANT HUMAN THROMBOPOIETIN [Concomitant]
     Active Substance: RECOMBINANT HUMAN THROMBOPOIETIN
     Dosage: UNK
     Route: 065
     Dates: start: 20231207
  10. PLATELETS [Concomitant]
     Active Substance: HUMAN PLATELET, ALLOGENIC
     Indication: Platelet count decreased
     Dosage: 1 TREATMENT VOLUME, LEUKOREDUCED, TRANSFUSION
     Route: 065
     Dates: start: 20231204
  11. PLATELETS [Concomitant]
     Active Substance: HUMAN PLATELET, ALLOGENIC
     Dosage: 1 TREATMENT VOLUME, TRANSFUSION
     Route: 065
     Dates: start: 20231206
  12. PLATELETS [Concomitant]
     Active Substance: HUMAN PLATELET, ALLOGENIC
     Dosage: 1 TREATMENT VOLUME, TRANSFUSION
     Route: 065
     Dates: start: 20231207

REACTIONS (2)
  - Disease progression [Fatal]
  - Platelet count decreased [Recovered/Resolved]

NARRATIVE: CASE EVENT DATE: 20231201
